FAERS Safety Report 21739347 (Version 1)
Quarter: 2022Q4

REPORT INFORMATION
  Report Type: Spontaneous
  Country: US (occurrence: US)
  Receive Date: 20221216
  Receipt Date: 20221216
  Transmission Date: 20230113
  Serious: Yes (Other)
  Sender: FDA-Public Use
  Company Number: US-drreddys-SPO/USA/22/0158103

PATIENT
  Age: 24 Year
  Sex: Male

DRUGS (1)
  1. IBUPROFEN [Suspect]
     Active Substance: IBUPROFEN
     Indication: Alcoholic hangover

REACTIONS (3)
  - Flank pain [Recovered/Resolved]
  - Acute kidney injury [Recovered/Resolved]
  - Product use in unapproved indication [Unknown]
